FAERS Safety Report 5052091-5 (Version None)
Quarter: 2006Q3

REPORT INFORMATION
  Report Type: 
  Country: None (occurrence: None)
  Receive Date: 20060711
  Receipt Date: 20060626
  Transmission Date: 20061208
  Serious: Yes (Other)
  Sender: FDA-Public Use
  Company Number: GXKR2006FR03598

PATIENT
  Sex: Male

DRUGS (1)
  1. SULFADIAZINE [Suspect]
     Indication: TOXOPLASMOSIS

REACTIONS (5)
  - BACK PAIN [None]
  - HAEMODIALYSIS [None]
  - HYDRONEPHROSIS [None]
  - OBSTRUCTIVE UROPATHY [None]
  - RENAL FAILURE [None]
